FAERS Safety Report 6622217-8 (Version None)
Quarter: 2010Q1

REPORT INFORMATION
  Report Type: 
  Country: None (occurrence: None)
  Receive Date: 20100310
  Receipt Date: 20100301
  Transmission Date: 20100710
  Serious: Yes (Death, Hospitalization)
  Sender: FDA-Public Use
  Company Number: US-BIOGENIDEC-2010BI000678

PATIENT
  Age: 69 Year
  Sex: Female

DRUGS (3)
  1. AVONEX [Suspect]
     Indication: MULTIPLE SCLEROSIS
     Route: 030
     Dates: start: 20071101
  2. AVONEX [Suspect]
     Route: 030
  3. AVONEX [Suspect]
     Route: 030
     Dates: start: 20040101

REACTIONS (5)
  - CARDIAC FAILURE [None]
  - CLOSTRIDIAL INFECTION [None]
  - CORONARY ARTERY BYPASS [None]
  - DECUBITUS ULCER [None]
  - GASTROSTOMY TUBE INSERTION [None]
